FAERS Safety Report 17598621 (Version 1)
Quarter: 2020Q1

REPORT INFORMATION
  Report Type: Spontaneous
  Country: US (occurrence: US)
  Receive Date: 20200327
  Receipt Date: 20200327
  Transmission Date: 20200409
  Serious: No
  Sender: FDA-Public Use
  Company Number: None

PATIENT
  Age: 66 Year
  Sex: Male

DRUGS (2)
  1. CAPECITABINE 500 MG TABLETS [Suspect]
     Active Substance: CAPECITABINE
     Indication: PANCREATIC CARCINOMA
     Dosage: ?          OTHER FREQUENCY:AM DAYS 1-14;?
     Route: 048
     Dates: start: 20200321
  2. CAPECITABINE 500 MG TABLETS [Suspect]
     Active Substance: CAPECITABINE
     Dosage: ?          OTHER FREQUENCY:EVENING 21 DAY CYC;?
     Route: 048

REACTIONS (2)
  - Vomiting [None]
  - Cerebrovascular accident [None]

NARRATIVE: CASE EVENT DATE: 20200326
